FAERS Safety Report 26059319 (Version 1)
Quarter: 2025Q4

REPORT INFORMATION
  Report Type: Spontaneous
  Country: GB (occurrence: GB)
  Receive Date: 20251118
  Receipt Date: 20251118
  Transmission Date: 20260117
  Serious: Yes (Other)
  Sender: B. BRAUN MEDICAL INC.
  Company Number: None

PATIENT
  Sex: Female

DRUGS (2)
  1. SODIUM CHLORIDE [Suspect]
     Active Substance: SODIUM CHLORIDE
     Dosage: THE PHENYLEPHRINE WAS MIXED INTO A 100ML BOTTLE OF?0.9%NACL
  2. PHENYLEPHRINE [Suspect]
     Active Substance: PHENYLEPHRINE
     Dosage: 10MG/ML?PL 50604/0003?SUPPLIER NAME?MARTINDALE PHARMA

REACTIONS (1)
  - Blood pressure decreased [Unknown]

NARRATIVE: CASE EVENT DATE: 20251017
